FAERS Safety Report 9924327 (Version 2)
Quarter: 2015Q4

REPORT INFORMATION
  Report Type: Report from Study
  Country: US (occurrence: US)
  Receive Date: 20140226
  Receipt Date: 20151118
  Transmission Date: 20160305
  Serious: Yes (Other)
  Sender: FDA-Public Use
  Company Number: US-ROCHE-1332961

PATIENT
  Age: 64 Year
  Sex: Female

DRUGS (18)
  1. LUCENTIS [Suspect]
     Active Substance: RANIBIZUMAB
     Indication: RETINAL OEDEMA
     Route: 050
     Dates: start: 20100726
  2. PHENYLEPHRINE [Concomitant]
     Active Substance: PHENYLEPHRINE\PHENYLEPHRINE HYDROCHLORIDE
  3. TETRAVISC [Concomitant]
     Active Substance: TETRACAINE HYDROCHLORIDE
     Indication: PREOPERATIVE CARE
     Dosage: GTTS
     Route: 065
  4. AVASTIN [Suspect]
     Active Substance: BEVACIZUMAB
     Indication: CYSTOID MACULAR OEDEMA
     Route: 050
     Dates: start: 20100614, end: 20100614
  5. BETADINE [Concomitant]
     Active Substance: POVIDONE-IODINE
  6. FISH OIL [Concomitant]
     Active Substance: FISH OIL
     Route: 048
  7. VITAMIN D3 [Concomitant]
     Active Substance: CHOLECALCIFEROL
     Route: 048
  8. PRED FORTE [Concomitant]
     Active Substance: PREDNISOLONE ACETATE
     Dosage: GTTS OU AS DIRECTED
     Route: 047
  9. CALCIUM CITRATE [Concomitant]
     Active Substance: CALCIUM CITRATE
     Route: 048
  10. AKTEN [Concomitant]
     Active Substance: LIDOCAINE HYDROCHLORIDE
     Dosage: GTTS
     Route: 065
  11. MYDRIACYL [Concomitant]
     Active Substance: TROPICAMIDE
  12. ZYMAR [Concomitant]
     Active Substance: GATIFLOXACIN
     Dosage: X 3 DAYS POST-OP GTTS
     Route: 065
  13. LUCENTIS [Suspect]
     Active Substance: RANIBIZUMAB
     Indication: RETINAL VEIN OCCLUSION
  14. LEVOTHYROXINE SODIUM. [Concomitant]
     Active Substance: LEVOTHYROXINE SODIUM
     Route: 048
  15. COSOPT [Concomitant]
     Active Substance: DORZOLAMIDE HYDROCHLORIDE\TIMOLOL MALEATE
     Route: 065
  16. VITAMIN C [Concomitant]
     Active Substance: ASCORBIC ACID
     Route: 048
  17. DORZOLAMIDE HYDROCHLORIDE. [Concomitant]
     Active Substance: DORZOLAMIDE HYDROCHLORIDE
  18. PROPARACAINE [Concomitant]
     Active Substance: PROPARACAINE
     Indication: PREOPERATIVE CARE
     Dosage: GTTS
     Route: 065

REACTIONS (5)
  - Vitreous floaters [Unknown]
  - Off label use [Unknown]
  - Visual acuity reduced [Unknown]
  - Visual impairment [Unknown]
  - Cystoid macular oedema [Unknown]

NARRATIVE: CASE EVENT DATE: 20100614
